FAERS Safety Report 13015025 (Version 1)
Quarter: 2016Q4

REPORT INFORMATION
  Report Type: Spontaneous
  Country: GB (occurrence: GB)
  Receive Date: 20161210
  Receipt Date: 20161210
  Transmission Date: 20170207
  Serious: Yes (Other)
  Sender: FDA-Public Use
  Company Number: GB-STRIDES ARCOLAB LIMITED-2016SP018830

PATIENT

DRUGS (5)
  1. IBUPROFEN. [Suspect]
     Active Substance: IBUPROFEN
     Indication: NEPHROGENIC DIABETES INSIPIDUS
     Dosage: 400 MG, BID
  2. AMILORIDE [Suspect]
     Active Substance: AMILORIDE
     Indication: NEPHROGENIC DIABETES INSIPIDUS
     Dosage: 10 MG, QD
  3. BENDROFLUMETHIAZIDE [Suspect]
     Active Substance: BENDROFLUMETHIAZIDE
     Indication: NEPHROGENIC DIABETES INSIPIDUS
     Dosage: 2.5 MG, QD
  4. LITHIUM. [Concomitant]
     Active Substance: LITHIUM
     Indication: SCHIZOPHRENIA
     Dosage: 1.2 G, QD
  5. LITHIUM. [Concomitant]
     Active Substance: LITHIUM
     Dosage: 500 MG, QD

REACTIONS (2)
  - Off label use [Unknown]
  - Drug ineffective for unapproved indication [Unknown]
